FAERS Safety Report 14592970 (Version 1)
Quarter: 2018Q1

REPORT INFORMATION
  Report Type: Spontaneous
  Country: US (occurrence: US)
  Receive Date: 20180302
  Receipt Date: 20180302
  Transmission Date: 20180509
  Serious: Yes (Life-Threatening, Hospitalization, Disabling, Other)
  Sender: FDA-Public Use
  Company Number: None

PATIENT
  Age: 58 Year
  Sex: Female
  Weight: 56.25 kg

DRUGS (27)
  1. LORSTATIN [Concomitant]
  2. MULTI VITAMIN [Concomitant]
     Active Substance: VITAMINS
  3. GINGER TEA [Concomitant]
  4. LYRICA [Concomitant]
     Active Substance: PREGABALIN
  5. VIT B-12 [Concomitant]
  6. VITAMIN E [Concomitant]
     Active Substance: .ALPHA.-TOCOPHEROL
  7. CALCIUM [Concomitant]
     Active Substance: CALCIUM
  8. BOTRANS PATCH [Concomitant]
  9. MACROBID [Concomitant]
     Active Substance: NITROFURANTOIN\NITROFURANTOIN MONOHYDRATE
  10. D-MANNOSE [Concomitant]
  11. ADVIL [Concomitant]
     Active Substance: IBUPROFEN
  12. CYMBALTA [Concomitant]
     Active Substance: DULOXETINE HYDROCHLORIDE
  13. AMPICILLIAN [Concomitant]
  14. COMBIPATCH [Concomitant]
     Active Substance: ESTRADIOL\NORETHINDRONE ACETATE
  15. ZOFRAN [Concomitant]
     Active Substance: ONDANSETRON HYDROCHLORIDE
  16. CLONAZAPAM [Concomitant]
     Active Substance: CLONAZEPAM
  17. FLEXERIL [Concomitant]
     Active Substance: CYCLOBENZAPRINE HYDROCHLORIDE
  18. POTTASIUM CHLORIDE [Concomitant]
     Active Substance: POTASSIUM CHLORIDE
  19. ASPIRIN. [Concomitant]
     Active Substance: ASPIRIN
  20. CIPRO [Suspect]
     Active Substance: CIPROFLOXACIN HYDROCHLORIDE
  21. GABAPINTIN [Concomitant]
  22. AZO STANDARD [Concomitant]
     Active Substance: PHENAZOPYRIDINE HYDROCHLORIDE
  23. BIOTIN [Concomitant]
     Active Substance: BIOTIN
  24. LEVOFLOXACIN. [Suspect]
     Active Substance: LEVOFLOXACIN
     Indication: URINARY TRACT INFECTION
     Route: 048
     Dates: start: 20160901, end: 20160903
  25. PERECET [Concomitant]
  26. MAGNESIUM [Concomitant]
     Active Substance: MAGNESIUM
  27. VITAMIN D [Concomitant]
     Active Substance: CHOLECALCIFEROL

REACTIONS (16)
  - Angiopathy [None]
  - Cognitive disorder [None]
  - Toxicity to various agents [None]
  - Neuropathy peripheral [None]
  - Gait inability [None]
  - Pain [None]
  - Memory impairment [None]
  - Bedridden [None]
  - Cerebrovascular accident [None]
  - Necrosis [None]
  - Bladder prolapse [None]
  - Back pain [None]
  - Muscle spasms [None]
  - Clonus [None]
  - Swelling [None]
  - Pain in extremity [None]

NARRATIVE: CASE EVENT DATE: 20160901
